FAERS Safety Report 24760311 (Version 1)
Quarter: 2024Q4

REPORT INFORMATION
  Report Type: Spontaneous
  Country: IT (occurrence: IT)
  Receive Date: 20241220
  Receipt Date: 20241220
  Transmission Date: 20250115
  Serious: Yes (Life-Threatening, Hospitalization, Other)
  Sender: GLAXOSMITHKLINE
  Company Number: None

PATIENT

DRUGS (1)
  1. JEMPERLI [Suspect]
     Active Substance: DOSTARLIMAB\DOSTARLIMAB-GXLY
     Indication: Endometrial cancer metastatic
     Dosage: UNK UNK, Q3W (EVERY 3 WEEKS FOR 4 CYCLES)
     Route: 042
     Dates: start: 2024, end: 202408

REACTIONS (2)
  - Thrombocytopenia [Not Recovered/Not Resolved]
  - Haemorrhagic diathesis [Not Recovered/Not Resolved]

NARRATIVE: CASE EVENT DATE: 20241124
